FAERS Safety Report 13093369 (Version 1)
Quarter: 2017Q1

REPORT INFORMATION
  Report Type: Spontaneous
  Country: DE (occurrence: DE)
  Receive Date: 20170106
  Receipt Date: 20170106
  Transmission Date: 20170428
  Serious: Yes (Death, Other)
  Sender: FDA-Public Use
  Company Number: DE-GLAXOSMITHKLINE-DE2016195573

PATIENT
  Age: 36 Year
  Sex: Male

DRUGS (1)
  1. NICOTINE GUM [Suspect]
     Active Substance: NICOTINE
     Indication: SMOKING CESSATION THERAPY
     Dosage: UNK
     Route: 065

REACTIONS (2)
  - Myocardial infarction [Fatal]
  - Incorrect drug administration duration [Unknown]
